FAERS Safety Report 12742956 (Version 1)
Quarter: 2016Q3

REPORT INFORMATION
  Report Type: Spontaneous
  Country: US (occurrence: US)
  Receive Date: 20160914
  Receipt Date: 20160914
  Transmission Date: 20161109
  Serious: No
  Sender: FDA-Public Use
  Company Number: None

PATIENT

DRUGS (1)
  1. BICILLIN L-A [Suspect]
     Active Substance: PENICILLIN G BENZATHINE
     Dosage: SRENGTH: 1,200,000 UNITS/2ML
     Dates: start: 20160914, end: 20160914

REACTIONS (2)
  - Product packaging quantity issue [None]
  - Product label issue [None]

NARRATIVE: CASE EVENT DATE: 20160914
